FAERS Safety Report 24560495 (Version 3)
Quarter: 2025Q1

REPORT INFORMATION
  Report Type: Spontaneous
  Country: US (occurrence: US)
  Receive Date: 20241029
  Receipt Date: 20250107
  Transmission Date: 20250408
  Serious: Yes (Hospitalization, Other)
  Sender: AUROBINDO
  Company Number: US-MLMSERVICE-20241010-PI223892-00270-1

PATIENT
  Age: 7 Decade
  Sex: Female

DRUGS (9)
  1. METHYLPREDNISOLONE [Suspect]
     Active Substance: METHYLPREDNISOLONE
     Indication: Acute generalised exanthematous pustulosis
     Route: 042
  2. METHYLPREDNISOLONE [Suspect]
     Active Substance: METHYLPREDNISOLONE
     Dosage: 60 MILLIGRAM, 3 TIMES A DAY (125 MG ONCE, FOLLOWED BY 60MG EVERY 8 HOURS)
     Route: 042
  3. METHYLPREDNISOLONE [Suspect]
     Active Substance: METHYLPREDNISOLONE
     Dosage: 20 MILLIGRAM, 3 TIMES A DAY  (30MIN PRIOR TO EACH IVIG ADMINISTRATION)
     Route: 042
  4. METHYLPREDNISOLONE [Suspect]
     Active Substance: METHYLPREDNISOLONE
     Dosage: 500 MILLIGRAM (500MG WAS GIVEN ONCE, FOLLOWED BY THREE DOSES AT 60MG, THEN 20MG EVERY 8HOURS)
     Route: 042
  5. METHYLPREDNISOLONE [Suspect]
     Active Substance: METHYLPREDNISOLONE
     Route: 042
  6. METHYLPREDNISOLONE [Suspect]
     Active Substance: METHYLPREDNISOLONE
     Dosage: 20 MILLIGRAM, 3 TIMES A DAY (500MG WAS GIVEN ONCE, FOLLOWED BY THREE DOSES AT 60MG, THEN 20MG EVERY
     Route: 042
  7. PREDNISONE [Suspect]
     Active Substance: PREDNISONE
     Indication: COVID-19
     Dosage: 12.5 MILLIGRAM, ONCE A DAY (PROLONGED STEROID TAPER, ON PREDNISONE 12.5 MG DAILY)
     Route: 042
  8. APIXABAN [Concomitant]
     Active Substance: APIXABAN
     Indication: Pulmonary embolism
     Dosage: 5 MILLIGRAM, TWO TIMES A DAY
     Route: 065
  9. PANTOPRAZOLE [Concomitant]
     Active Substance: PANTOPRAZOLE
     Indication: Gastrooesophageal reflux disease
     Dosage: 40 MILLIGRAM, ONCE A DAY
     Route: 065

REACTIONS (6)
  - Disseminated herpes simplex [Recovering/Resolving]
  - Ophthalmic herpes simplex [Recovering/Resolving]
  - Herpes simplex virus urethritis [Recovering/Resolving]
  - Oral herpes [Recovering/Resolving]
  - Herpes simplex reactivation [Recovering/Resolving]
  - Off label use [Unknown]
